FAERS Safety Report 17833685 (Version 1)
Quarter: 2020Q2

REPORT INFORMATION
  Report Type: Spontaneous
  Country: US (occurrence: US)
  Receive Date: 20200528
  Receipt Date: 20200528
  Transmission Date: 20200714
  Serious: No
  Sender: FDA-Public Use
  Company Number: US-SUN PHARMACEUTICAL INDUSTRIES LTD-2020R1-240475

PATIENT
  Sex: Male

DRUGS (1)
  1. ABSORICA LD [Suspect]
     Active Substance: ISOTRETINOIN
     Indication: PRODUCT USED FOR UNKNOWN INDICATION
     Dosage: UNK
     Route: 065
     Dates: start: 20200305

REACTIONS (7)
  - Crying [Unknown]
  - Depressed mood [Unknown]
  - Retching [Unknown]
  - Decreased appetite [Unknown]
  - Nausea [Unknown]
  - Flatulence [Unknown]
  - Pruritus [Unknown]
